FAERS Safety Report 6314019-7 (Version None)
Quarter: 2009Q3

REPORT INFORMATION
  Report Type: 
  Country: None (occurrence: None)
  Receive Date: 20090818
  Receipt Date: 20090813
  Transmission Date: 20100115
  Serious: Yes (Death)
  Sender: FDA-Public Use
  Company Number: ZA-GILEAD-2009-0023685

PATIENT
  Age: 46 Year
  Sex: Male
  Weight: 56.4 kg

DRUGS (3)
  1. TRUVADA [Suspect]
     Indication: HIV INFECTION
     Route: 048
     Dates: start: 20090528, end: 20090621
  2. EFAVIRENZ [Concomitant]
     Indication: HIV INFECTION
     Dates: start: 20090528, end: 20090621
  3. RIFAFOUR [Concomitant]
     Indication: PULMONARY TUBERCULOSIS
     Dates: start: 20090415

REACTIONS (1)
  - PULMONARY TUBERCULOSIS [None]
